FAERS Safety Report 9771404 (Version 2)
Quarter: 2014Q1

REPORT INFORMATION
  Report Type: Report from Study
  Country: DE (occurrence: DE)
  Receive Date: 20131219
  Receipt Date: 20140130
  Transmission Date: 20141002
  Serious: Yes (Hospitalization)
  Sender: FDA-Public Use
  Company Number: DE-AMGEN-DEUCT2013088802

PATIENT
  Age: 64 Year
  Sex: Female
  Weight: 74 kg

DRUGS (2)
  1. ETANERCEPT [Suspect]
     Indication: PRODUCT USED FOR UNKNOWN INDICATION
     Dosage: 50 MG, WEEKLY
     Route: 065
     Dates: start: 20130911, end: 20131010
  2. CELEBREX [Concomitant]
     Indication: PSORIATIC ARTHROPATHY
     Dosage: UNK UNK, AS NECESSARY
     Route: 048

REACTIONS (1)
  - Psoriasis [Recovering/Resolving]
